FAERS Safety Report 24687477 (Version 1)
Quarter: 2024Q4

REPORT INFORMATION
  Report Type: Spontaneous
  Country: GB (occurrence: GB)
  Receive Date: 20241202
  Receipt Date: 20241202
  Transmission Date: 20250114
  Serious: Yes (Hospitalization, Other)
  Sender: ANI
  Company Number: GB-ANIPHARMA-2024-UK-000234

PATIENT
  Sex: 0

DRUGS (1)
  1. CANDESARTAN CILEXETIL [Suspect]
     Active Substance: CANDESARTAN CILEXETIL
     Indication: Product used for unknown indication

REACTIONS (1)
  - Fall [Recovering/Resolving]
